FAERS Safety Report 11019327 (Version 2)
Quarter: 2015Q2

REPORT INFORMATION
  Report Type: Spontaneous
  Country: US (occurrence: US)
  Receive Date: 20150412
  Receipt Date: 20150525
  Transmission Date: 20150821
  Serious: Yes (Hospitalization, Other)
  Sender: FDA-Public Use
  Company Number: US-JNJFOC-20100806833

PATIENT
  Age: 64 Year
  Sex: Male

DRUGS (4)
  1. LEVAQUIN [Suspect]
     Active Substance: LEVOFLOXACIN
     Indication: INFECTION
     Route: 048
     Dates: start: 19980101, end: 20001231
  2. LEVAQUIN [Suspect]
     Active Substance: LEVOFLOXACIN
     Indication: EAR INFECTION
     Route: 048
     Dates: start: 19980101, end: 20001231
  3. LEVAQUIN [Suspect]
     Active Substance: LEVOFLOXACIN
     Indication: CELLULITIS
     Route: 048
     Dates: start: 19980101, end: 20001231
  4. LEVAQUIN [Suspect]
     Active Substance: LEVOFLOXACIN
     Indication: INFLUENZA
     Route: 048
     Dates: start: 19980101, end: 20001231

REACTIONS (4)
  - Tendonitis [Unknown]
  - Rotator cuff syndrome [Unknown]
  - Rotator cuff syndrome [Recovering/Resolving]
  - Tendon rupture [Unknown]

NARRATIVE: CASE EVENT DATE: 200001
